FAERS Safety Report 6102814-9 (Version None)
Quarter: 2009Q1

REPORT INFORMATION
  Report Type: 
  Country: None (occurrence: None)
  Receive Date: 20090227
  Receipt Date: 20081029
  Transmission Date: 20090719
  Serious: Yes (Other)
  Sender: FDA-Public Use
  Company Number: 594618

PATIENT
  Age: 15 Year
  Sex: Female

DRUGS (3)
  1. ACCUTANE [Suspect]
     Indication: ACNE
     Dosage: 40 MG 2 PER DAY
     Dates: start: 20080301, end: 20080901
  2. CLARITIN-D [Suspect]
     Indication: VIRAL INFECTION
  3. YAZ (DROSPIRENONE/ESTRADIOL) [Concomitant]

REACTIONS (5)
  - ANXIETY [None]
  - DEPRESSION [None]
  - DYSMENORRHOEA [None]
  - THINKING ABNORMAL [None]
  - VIRAL INFECTION [None]
